FAERS Safety Report 17109925 (Version 1)
Quarter: 2019Q4

REPORT INFORMATION
  Report Type: Spontaneous
  Country: US (occurrence: US)
  Receive Date: 20191204
  Receipt Date: 20191204
  Transmission Date: 20200122
  Serious: Yes (Other)
  Sender: FDA-Public Use
  Company Number: US-HIKMA PHARMACEUTICALS USA INC.-US-H14001-19-06001

PATIENT
  Age: 64 Year
  Sex: Female

DRUGS (3)
  1. MYCOPHENOLATE MOFETIL. [Suspect]
     Active Substance: MYCOPHENOLATE MOFETIL
     Indication: END STAGE RENAL DISEASE
     Route: 065
  2. PREDNISONE. [Suspect]
     Active Substance: PREDNISONE
     Indication: END STAGE RENAL DISEASE
     Route: 065
  3. TACROLIMUS. [Suspect]
     Active Substance: TACROLIMUS
     Indication: END STAGE RENAL DISEASE
     Route: 065

REACTIONS (3)
  - Coombs negative haemolytic anaemia [Not Recovered/Not Resolved]
  - Cytomegalovirus infection [Recovering/Resolving]
  - Disseminated intravascular coagulation [Recovered/Resolved]
